FAERS Safety Report 24464004 (Version 1)
Quarter: 2024Q4

REPORT INFORMATION
  Report Type: Report from Study
  Country: US (occurrence: US)
  Receive Date: 20241018
  Receipt Date: 20241018
  Transmission Date: 20250115
  Serious: No
  Sender: ROCHE
  Company Number: US-ROCHE-3331797

PATIENT
  Age: 71 Year
  Sex: Male
  Weight: 93.0 kg

DRUGS (15)
  1. XOLAIR [Suspect]
     Active Substance: OMALIZUMAB
     Indication: Asthma
     Dosage: 150 MG/ML DISPENSE A FREE 28 DAY XOLAIR STARTER SUPPLY REFILL X2 SUBCUTANEOUSLY
     Route: 058
     Dates: start: 20230412
  2. XOLAIR [Suspect]
     Active Substance: OMALIZUMAB
     Indication: Seasonal allergy
  3. XOLAIR [Suspect]
     Active Substance: OMALIZUMAB
     Indication: Allergy to animal
  4. ALBUTEROL SULFATE [Concomitant]
     Active Substance: ALBUTEROL SULFATE
     Dosage: 2.5MG/3 SOLUTION FOR NEBULIZATION INHALE 1 VIAL
     Dates: start: 20230324
  5. ALBUTEROL SULFATE [Concomitant]
     Active Substance: ALBUTEROL SULFATE
     Dosage: 90MCG/ ACTUALATION, 2 PUFF USING INHALER
     Route: 055
  6. ALBUTEROL SULFATE [Concomitant]
     Active Substance: ALBUTEROL SULFATE
     Dosage: 2.5MG/3 SOLUTION FOR NEBULIZATION
  7. AZITHROMYCIN [Concomitant]
     Active Substance: AZITHROMYCIN
     Dates: start: 20230324
  8. BRIMODINE [Concomitant]
     Dates: start: 20220206
  9. KETOROLAC [Concomitant]
     Active Substance: KETOROLAC TROMETHAMINE
     Dates: start: 20220206
  10. LATANOPROST [Concomitant]
     Active Substance: LATANOPROST
     Dates: start: 20220206
  11. MONTELUKAST [Concomitant]
     Active Substance: MONTELUKAST
     Dates: start: 20220206
  12. PAROXETINE HYDROCHLORIDE [Concomitant]
     Active Substance: PAROXETINE HYDROCHLORIDE
     Dates: start: 20220206
  13. PRAVASTATIN [Concomitant]
     Active Substance: PRAVASTATIN
     Dates: start: 20220206
  14. PREDNISOLONE [Concomitant]
     Active Substance: PREDNISOLONE
     Route: 048
  15. OFLOXACIN [Concomitant]
     Active Substance: OFLOXACIN
     Dosage: 4 TIMES DAILY FOR 9 DAYS STARTING 2 DAYS PRIOR TO SURGERY

REACTIONS (7)
  - Off label use [Unknown]
  - Dyspnoea [Unknown]
  - Chest discomfort [Unknown]
  - Wheezing [Unknown]
  - Fatigue [Unknown]
  - Sputum discoloured [Unknown]
  - Blood immunoglobulin E increased [Unknown]
